FAERS Safety Report 6978108-6 (Version None)
Quarter: 2010Q3

REPORT INFORMATION
  Report Type: 
  Country: None (occurrence: None)
  Receive Date: 20100913
  Receipt Date: 20100901
  Transmission Date: 20110219
  Serious: Yes (Life-Threatening)
  Sender: FDA-Public Use
  Company Number: GXKR2010GB09987

PATIENT
  Age: 19 Year
  Sex: Female

DRUGS (14)
  1. CHLORPHENIRAMINE (NGX) [Suspect]
     Dosage: 10 MG, QID
     Route: 042
  2. OMEPRAZOLE (NGX) [Suspect]
     Route: 065
  3. ONDANSETRON [Suspect]
     Dosage: 8 MG, TID
     Route: 065
  4. PARACETAMOL (NCH) [Suspect]
     Route: 042
  5. ACYCLOVIR [Suspect]
     Route: 065
  6. ALLOPURINOL [Suspect]
     Route: 048
  7. CASPOFUNGIN [Suspect]
     Dosage: 70 MG, QD
     Route: 042
  8. CYCLOSPORINE [Suspect]
     Route: 065
  9. ETOPOPHOS PRESERVATIVE FREE [Suspect]
     Dosage: UNK
     Route: 042
     Dates: start: 20070915, end: 20070915
  10. KETALAR [Suspect]
     Indication: PAIN
     Dosage: UNK
     Route: 065
     Dates: start: 20070921, end: 20070928
  11. MORPHINE [Suspect]
     Route: 042
  12. NORETHISTERONE [Suspect]
     Dosage: 15 MG, TID
     Route: 065
  13. TAZOCIN [Suspect]
     Dosage: 4.5 MG, TID
     Route: 042
  14. VORICONAZOLE [Suspect]
     Dosage: 200 MG, BID
     Route: 065

REACTIONS (4)
  - DILATATION INTRAHEPATIC DUCT ACQUIRED [None]
  - HEPATOTOXICITY [None]
  - LIVER FUNCTION TEST ABNORMAL [None]
  - VENOOCCLUSIVE LIVER DISEASE [None]
